FAERS Safety Report 4839874-9 (Version None)
Quarter: 2005Q4

REPORT INFORMATION
  Report Type: 
  Country: None (occurrence: None)
  Receive Date: 20051125
  Receipt Date: 20051108
  Transmission Date: 20060501
  Serious: Yes (Other)
  Sender: FDA-Public Use
  Company Number: 219683

PATIENT

DRUGS (1)
  1. AVASTIN [Suspect]
     Indication: NEOPLASM MALIGNANT
     Dosage: 25 MG/ML, INTRAVENOUS
     Route: 042
     Dates: start: 20050615

REACTIONS (1)
  - SMALL INTESTINAL PERFORATION [None]
